FAERS Safety Report 23787776 (Version 2)
Quarter: 2024Q4

REPORT INFORMATION
  Report Type: Spontaneous
  Country: ZA (occurrence: ZA)
  Receive Date: 20240426
  Receipt Date: 20241031
  Transmission Date: 20250115
  Serious: Yes (Hospitalization, Other)
  Sender: PFIZER
  Company Number: ZA-PFIZER INC-PV202400053806

PATIENT
  Age: 6 Year
  Sex: Female

DRUGS (7)
  1. METHOTREXATE SODIUM [Suspect]
     Active Substance: METHOTREXATE SODIUM
     Indication: Juvenile idiopathic arthritis
     Dosage: 15 MG, WEEKLY
     Route: 058
     Dates: start: 202301
  2. METHOTREXATE SODIUM [Suspect]
     Active Substance: METHOTREXATE SODIUM
     Dosage: 12.5 MG, WEEKLY
     Route: 058
     Dates: start: 202301
  3. CHLOROQUINE SULFATE [Suspect]
     Active Substance: CHLOROQUINE SULFATE
     Indication: Juvenile idiopathic arthritis
     Dosage: 200 MG MON, WED AND FRIDAY
     Dates: start: 202301
  4. PREDNISONE [Suspect]
     Active Substance: PREDNISONE
     Indication: Juvenile idiopathic arthritis
     Dosage: 20 MG, DAILY HAS REQUIRED INTERMITTENT PULSES
     Dates: start: 202301
  5. PREDNISONE [Suspect]
     Active Substance: PREDNISONE
     Dosage: 20 MG, DAILY HAS REQUIRED INTERMITTENT PULSES
     Dates: start: 202301
  6. IBUPROFEN [Concomitant]
     Active Substance: IBUPROFEN
     Dosage: 200 MG, 2X/DAY AS NEEDED
     Dates: start: 202301
  7. ENBREL [Concomitant]
     Active Substance: ETANERCEPT
     Dosage: 20 MG, WEEKLY
     Dates: start: 202407

REACTIONS (6)
  - COVID-19 [Unknown]
  - Multisystem inflammatory syndrome in children [Unknown]
  - Condition aggravated [Unknown]
  - Platelet count increased [Unknown]
  - C-reactive protein increased [Unknown]
  - Off label use [Unknown]

NARRATIVE: CASE EVENT DATE: 20230101
